FAERS Safety Report 7263178-0 (Version None)
Quarter: 2011Q1

REPORT INFORMATION
  Report Type: 
  Country: None (occurrence: None)
  Receive Date: 20110130
  Receipt Date: 20101012
  Transmission Date: 20110831
  Serious: No
  Sender: FDA-Public Use
  Company Number: US-ABBOTT-10P-163-0677870-00

PATIENT
  Sex: Female
  Weight: 65.376 kg

DRUGS (12)
  1. ZAROXOLYN [Concomitant]
  2. HUMIRA [Suspect]
     Route: 058
     Dates: start: 20101019
  3. POTASSIUM [Concomitant]
     Indication: BLOOD POTASSIUM DECREASED
  4. HUMIRA [Suspect]
     Indication: PSORIASIS
     Dates: start: 20101012, end: 20101012
  5. PREMARIN [Concomitant]
     Indication: MENOPAUSE
  6. POTASSIUM [Concomitant]
     Indication: FATIGUE
  7. SYNTHROID [Concomitant]
     Indication: HYPOTHYROIDISM
  8. ALLEGRA [Concomitant]
     Indication: PRODUCT USED FOR UNKNOWN INDICATION
  9. ZAROXOLYN [Concomitant]
     Indication: OEDEMA PERIPHERAL
  10. MUCINEX [Concomitant]
     Indication: PRODUCT USED FOR UNKNOWN INDICATION
  11. CALCIUM [Concomitant]
     Indication: PRODUCT USED FOR UNKNOWN INDICATION
  12. MULTI-VITAMIN [Concomitant]
     Indication: PRODUCT USED FOR UNKNOWN INDICATION

REACTIONS (8)
  - NAUSEA [None]
  - ANXIETY [None]
  - PALPITATIONS [None]
  - PARAESTHESIA [None]
  - ERYTHEMA [None]
  - DIZZINESS [None]
  - FEELING ABNORMAL [None]
  - DYSGEUSIA [None]
